FAERS Safety Report 9038777 (Version 1)
Quarter: 2013Q1

REPORT INFORMATION
  Report Type: Report from Study
  Country: US (occurrence: US)
  Receive Date: 20130129
  Receipt Date: 20130129
  Transmission Date: 20140127
  Serious: No
  Sender: FDA-Public Use
  Company Number: US-ABBOTT-12P-163-0935366-00

PATIENT
  Age: 11 Year
  Sex: Female

DRUGS (11)
  1. HUMIRA 40 MG/0.8 ML PEN [Suspect]
     Indication: JUVENILE IDIOPATHIC ARTHRITIS
  2. METHOTREXATE [Concomitant]
     Indication: PRODUCT USED FOR UNKNOWN INDICATION
  3. MELOXICAM [Concomitant]
     Indication: ARTHRITIS
     Dosage: 15MG DAILY
  4. ZANTAC [Concomitant]
     Indication: GASTRITIS PROPHYLAXIS
  5. FOLIC ACID [Concomitant]
     Indication: PRODUCT USED FOR UNKNOWN INDICATION
     Dosage: 2MCG DAILY
  6. MULTIVITAMIN [Concomitant]
     Indication: PRODUCT USED FOR UNKNOWN INDICATION
     Dosage: DAILY
  7. ATARAX [Concomitant]
     Indication: PRURITUS
     Dosage: DAILY
  8. ATARAX [Concomitant]
     Indication: SEASONAL ALLERGY
  9. TYLENOL [Concomitant]
     Indication: PAIN
  10. FLONASE [Concomitant]
     Indication: ARTHRITIS
  11. SINGULAIR [Concomitant]
     Indication: SEASONAL ALLERGY

REACTIONS (1)
  - Injection site pain [Not Recovered/Not Resolved]
